FAERS Safety Report 8125056-4 (Version None)
Quarter: 2012Q1

REPORT INFORMATION
  Report Type: 
  Country: None (occurrence: None)
  Receive Date: 20120209
  Receipt Date: 20120130
  Transmission Date: 20120608
  Serious: Yes (Hospitalization, Other)
  Sender: FDA-Public Use
  Company Number: DE-NAPPMUNDI-DEU-2012-0008587

PATIENT
  Sex: Male
  Weight: 3.7 kg

DRUGS (10)
  1. MORPHINE SULFATE [Suspect]
     Indication: FOETAL EXPOSURE DURING PREGNANCY
     Dosage: UNK, SEE TEXT
     Route: 064
     Dates: start: 20101126, end: 20110104
  2. SERTRALINE HYDROCHLORIDE [Suspect]
     Indication: FOETAL EXPOSURE DURING PREGNANCY
     Dosage: 50 MG, DAILY
     Route: 064
     Dates: start: 20110107, end: 20110822
  3. TRUXAL                             /00012101/ [Suspect]
     Indication: FOETAL EXPOSURE DURING PREGNANCY
     Dosage: 50 MG, DAILY
     Route: 064
     Dates: start: 20101126, end: 20110104
  4. OXYCODONE HYDROCHLORIDE [Suspect]
     Indication: FOETAL EXPOSURE DURING PREGNANCY
     Dosage: 70 MG, DAILY
     Route: 064
     Dates: start: 20101126, end: 20110822
  5. CYMBALTA [Suspect]
     Indication: FOETAL EXPOSURE DURING PREGNANCY
     Dosage: 30 MG, BID
     Route: 064
     Dates: start: 20101126, end: 20110104
  6. FEMIBION [Suspect]
     Indication: FOETAL EXPOSURE DURING PREGNANCY
     Dosage: 0.4 MG, DAILY
     Route: 064
  7. ESCITALOPRAM [Suspect]
     Indication: FOETAL EXPOSURE DURING PREGNANCY
     Dosage: 30 MG, DAILY
     Route: 064
     Dates: start: 20101126, end: 20110104
  8. AMITRIPTYLINE HCL [Suspect]
     Indication: FOETAL EXPOSURE DURING PREGNANCY
     Dosage: 150 MG, DAILY
     Route: 064
     Dates: start: 20101126, end: 20110104
  9. VOMEX A                            /00019501/ [Suspect]
     Indication: FOETAL EXPOSURE DURING PREGNANCY
     Dosage: 50 MG, TID
     Route: 064
     Dates: start: 20110107, end: 20110315
  10. OXYCODONE HYDROCHLORIDE [Suspect]
     Dosage: 10 MG, SEE TEXT
     Route: 064

REACTIONS (2)
  - NEONATAL RESPIRATORY DISTRESS SYNDROME [None]
  - DRUG WITHDRAWAL SYNDROME NEONATAL [None]
